FAERS Safety Report 5792602-5 (Version None)
Quarter: 2008Q2

REPORT INFORMATION
  Report Type: 
  Country: None (occurrence: None)
  Receive Date: 20080626
  Receipt Date: 20080617
  Transmission Date: 20081010
  Serious: Yes (Other)
  Sender: FDA-Public Use
  Company Number: US-PFIZER INC-2008050869

PATIENT
  Sex: Male

DRUGS (4)
  1. BEXTRA [Suspect]
  2. NEXIUM [Concomitant]
     Indication: GASTROOESOPHAGEAL REFLUX DISEASE
  3. PERCOCET [Concomitant]
     Indication: PAIN
  4. AMBIEN [Concomitant]
     Indication: SLEEP DISORDER

REACTIONS (1)
  - STEVENS-JOHNSON SYNDROME [None]
